FAERS Safety Report 9893257 (Version 1)
Quarter: 2014Q1

REPORT INFORMATION
  Report Type: Spontaneous
  Country: US (occurrence: US)
  Receive Date: 20140213
  Receipt Date: 20140213
  Transmission Date: 20141002
  Serious: No
  Sender: FDA-Public Use
  Company Number: US-BAYER-2014-022669

PATIENT
  Age: 55 Year
  Sex: Female

DRUGS (9)
  1. BETASERON [Suspect]
     Dosage: 0.25 MG, QOD
     Route: 058
  2. ZOLPIDEM [Concomitant]
     Dosage: 5 MG, UNK
  3. SYNTHROID [Concomitant]
     Dosage: 200 ?G, UNK
  4. HYDROCHLOROTHIAZID [Concomitant]
     Dosage: 25 MG, UNK
  5. OXYBUTYNIN [Concomitant]
     Dosage: 5 MG, UNK
  6. ESCITALOPRAM [Concomitant]
     Dosage: 10 MG, UNK
  7. VITAMIN D [Concomitant]
     Dosage: 400 UNIT
  8. CALCIUM +VIT D [Concomitant]
  9. CHONDROITIN [Concomitant]

REACTIONS (1)
  - Nasopharyngitis [Unknown]
